FAERS Safety Report 8713158 (Version 2)
Quarter: 2012Q4

REPORT INFORMATION
  Report Type: 
  Country: BR (occurrence: BR)
  Receive Date: 20120808
  Receipt Date: 20120918
  Transmission Date: 20130627
  Serious: Yes (Other)
  Sender: FDA-Public Use
  Company Number: BR-PFIZER INC-2012189200

PATIENT
  Age: 58 Year
  Sex: Female

DRUGS (10)
  1. LYRICA [Suspect]
     Indication: FIBROMYALGIA
     Dosage: 75 mg, 1x/day
     Route: 048
     Dates: start: 201207
  2. AAS [Concomitant]
     Indication: PERIPHERAL VASCULAR DISORDER
     Dosage: UNK
     Dates: start: 2003
  3. CLONAZEPAM [Concomitant]
     Indication: DEPRESSION
     Dosage: UNK
     Dates: start: 2003
  4. JANUVIA [Concomitant]
     Indication: DIABETES MELLITUS
     Dosage: UNK
     Dates: start: 2007
  5. LOSARTAN [Concomitant]
     Indication: HYPERTENSION
     Dosage: UNK
     Dates: start: 2003
  6. METFORMIN [Concomitant]
     Indication: DIABETES MELLITUS
     Dosage: UNK
     Dates: start: 2003
  7. METFORMIN [Concomitant]
     Indication: HYPERTENSION
  8. OMEPRAZOLE [Concomitant]
     Indication: HYPERCHLORHYDRIA
     Dosage: UNK
     Dates: start: 2003
  9. SERTRALINE [Concomitant]
     Indication: ANXIETY
     Dosage: UNK
     Dates: start: 201204
  10. COCONUT OIL [Concomitant]
     Dosage: UNK
     Dates: start: 20120714

REACTIONS (1)
  - Diabetes mellitus [Not Recovered/Not Resolved]
